FAERS Safety Report 16861213 (Version 2)
Quarter: 2020Q3

REPORT INFORMATION
  Report Type: Spontaneous
  Country: US (occurrence: US)
  Receive Date: 20190927
  Receipt Date: 20200918
  Transmission Date: 20201102
  Serious: Yes (Death, Hospitalization, Other)
  Sender: FDA-Public Use
  Company Number: US-GILEAD-2019-0429629

PATIENT
  Age: 62 Year
  Sex: Male
  Weight: 97.51 kg

DRUGS (25)
  1. TRUVADA [Suspect]
     Active Substance: EMTRICITABINE\TENOFOVIR DISOPROXIL FUMARATE
     Indication: HIV INFECTION
     Dosage: UNK
     Route: 048
     Dates: start: 2014, end: 2018
  2. AMIODARONE [Concomitant]
     Active Substance: AMIODARONE
  3. GLIPIZIDE. [Concomitant]
     Active Substance: GLIPIZIDE
  4. SERTRALINE HCL [Concomitant]
     Active Substance: SERTRALINE HYDROCHLORIDE
  5. SULFAMETHOXAZOLE [Concomitant]
     Active Substance: SULFAMETHOXAZOLE
  6. AZITHROMYCIN ANHYDROUS. [Concomitant]
     Active Substance: AZITHROMYCIN ANHYDROUS
  7. DEXTRAN [Concomitant]
     Active Substance: DEXTRAN
  8. OMEPRAZOLE. [Concomitant]
     Active Substance: OMEPRAZOLE
  9. ATORVASTATIN [Concomitant]
     Active Substance: ATORVASTATIN
  10. HYDRALAZINE HCL [Concomitant]
     Active Substance: HYDRALAZINE HYDROCHLORIDE
  11. TRIUMEQ [Concomitant]
     Active Substance: ABACAVIR SULFATE\DOLUTEGRAVIR SODIUM\LAMIVUDINE
  12. APIXABAN [Concomitant]
     Active Substance: APIXABAN
  13. CIPROFLOXACIN. [Concomitant]
     Active Substance: CIPROFLOXACIN
  14. FLUCONAZOLE. [Concomitant]
     Active Substance: FLUCONAZOLE
  15. TRUVADA [Suspect]
     Active Substance: EMTRICITABINE\TENOFOVIR DISOPROXIL FUMARATE
     Dosage: UNK
     Route: 048
     Dates: start: 20151001
  16. MAGNESIUM OXIDE. [Concomitant]
     Active Substance: MAGNESIUM OXIDE
  17. METFORMIN [METFORMIN HYDROCHLORIDE] [Concomitant]
     Active Substance: METFORMIN HYDROCHLORIDE
  18. ABACAVIR. [Concomitant]
     Active Substance: ABACAVIR
  19. DAPSONE. [Concomitant]
     Active Substance: DAPSONE
  20. LISINOPRIL. [Concomitant]
     Active Substance: LISINOPRIL
  21. SPIRONOLACTONE. [Concomitant]
     Active Substance: SPIRONOLACTONE
  22. BUMETANIDE. [Concomitant]
     Active Substance: BUMETANIDE
  23. CARVEDILOL. [Concomitant]
     Active Substance: CARVEDILOL
  24. POTASSIUM [Concomitant]
     Active Substance: POTASSIUM
  25. SIMVASTIN [Concomitant]
     Active Substance: SIMVASTATIN

REACTIONS (10)
  - Osteoporosis [Not Recovered/Not Resolved]
  - Renal impairment [Fatal]
  - Anxiety [Not Recovered/Not Resolved]
  - Renal failure [Fatal]
  - Anhedonia [Not Recovered/Not Resolved]
  - Spinal osteoarthritis [Not Recovered/Not Resolved]
  - Nephropathy [Fatal]
  - Emotional distress [Recovered/Resolved]
  - Economic problem [Not Recovered/Not Resolved]
  - Pain [Recovered/Resolved]

NARRATIVE: CASE EVENT DATE: 201711
